FAERS Safety Report 8474806-6 (Version None)
Quarter: 2012Q2

REPORT INFORMATION
  Report Type: 
  Country: None (occurrence: None)
  Receive Date: 20120628
  Receipt Date: 20120621
  Transmission Date: 20120825
  Serious: No
  Sender: FDA-Public Use
  Company Number: JP-SANOFI-AVENTIS-2012SA041460

PATIENT
  Age: 68 Year
  Sex: Male

DRUGS (11)
  1. LANTUS [Concomitant]
  2. LEVOCARNITINE HYDROCHLORIDE [Concomitant]
  3. RINLAXER [Concomitant]
  4. CALCIUM CARBONATE [Concomitant]
  5. CARVEDILOL [Concomitant]
     Dates: start: 20120526
  6. DIOVAN [Suspect]
     Route: 065
  7. LIPITOR [Concomitant]
     Dates: start: 20120526, end: 20120602
  8. ALLOPURINOL [Concomitant]
  9. PLAVIX [Suspect]
     Route: 048
     Dates: start: 20120524
  10. ASPIRIN [Concomitant]
  11. LANSOPRAZOLE [Concomitant]
     Dates: start: 20120526

REACTIONS (2)
  - HYPERSOMNIA [None]
  - SOMNOLENCE [None]
